FAERS Safety Report 23740921 (Version 1)
Quarter: 2024Q2

REPORT INFORMATION
  Report Type: Spontaneous
  Country: DE (occurrence: DE)
  Receive Date: 20240415
  Receipt Date: 20240415
  Transmission Date: 20240716
  Serious: Yes (Other)
  Sender: FDA-Public Use
  Company Number: None

PATIENT
  Age: 57 Year
  Sex: Male
  Weight: 60 kg

DRUGS (10)
  1. LACOSAMIDE [Concomitant]
     Active Substance: LACOSAMIDE
     Indication: Epilepsy
     Dosage: 300 MG/D
     Route: 048
     Dates: start: 2020
  2. AMPICILLIN SODIUM\SULBACTAM SODIUM [Suspect]
     Active Substance: AMPICILLIN SODIUM\SULBACTAM SODIUM
     Indication: Infectious pleural effusion
     Dosage: 3X 3 G?VORAUSSICHTLICHE GABE BIS 202404 ()
     Route: 042
     Dates: start: 20240315
  3. POTASSIUM CHLORIDE [Concomitant]
     Active Substance: POTASSIUM CHLORIDE
     Indication: Hypokalaemia
     Dosage: 40 MMOL/D
     Route: 048
     Dates: start: 20240319
  4. LAMOTRIGINE [Concomitant]
     Active Substance: LAMOTRIGINE
     Indication: Epilepsy
     Dosage: 150 MG/D
     Route: 048
     Dates: start: 2020
  5. LINEZOLID [Concomitant]
     Active Substance: LINEZOLID
     Indication: Infectious pleural effusion
     Dosage: 2X 600 MG?VORAUSSICHTLICHE GABE BIS 202404 ()
     Route: 042
     Dates: start: 20240305
  6. CARIPRAZINE [Concomitant]
     Active Substance: CARIPRAZINE
     Indication: Schizophrenia
     Dosage: 4,5 MG ()
     Route: 048
     Dates: start: 2020
  7. THIAMINE [Concomitant]
     Active Substance: THIAMINE
     Indication: Vitamin B complex deficiency
     Dosage: 100 MG/D
     Route: 048
     Dates: start: 20240320
  8. MELPERONE [Concomitant]
     Active Substance: MELPERONE
     Indication: Delirium
     Dosage: 25-50 MG/D ()
     Route: 048
     Dates: start: 20240319, end: 20240322
  9. CLOZAPINE [Concomitant]
     Active Substance: CLOZAPINE
     Indication: Epilepsy
     Dosage: 425 MG/D
     Route: 048
     Dates: start: 2020
  10. CEFTOLOZANE SULFATE\TAZOBACTAM SODIUM [Suspect]
     Active Substance: CEFTOLOZANE SULFATE\TAZOBACTAM SODIUM
     Indication: Pseudomonas infection
     Dosage: 3X 2 G/1 G?VORAUSSICHTLICHE GABE BIS 20240425 ()
     Route: 042
     Dates: start: 20240314

REACTIONS (1)
  - Epilepsy [Recovering/Resolving]

NARRATIVE: CASE EVENT DATE: 20240321
